FAERS Safety Report 8370963-0 (Version None)
Quarter: 2012Q2

REPORT INFORMATION
  Report Type: 
  Country: None (occurrence: None)
  Receive Date: 20120518
  Receipt Date: 20120419
  Transmission Date: 20120825
  Serious: No
  Sender: FDA-Public Use
  Company Number: US-ASTRAZENECA-2012SE25781

PATIENT
  Sex: Female

DRUGS (5)
  1. CRESTOR [Concomitant]
     Indication: BLOOD CHOLESTEROL INCREASED
     Route: 048
  2. NEXIUM [Suspect]
     Indication: GASTROOESOPHAGEAL REFLUX DISEASE
     Route: 048
  3. SYNTHROID [Concomitant]
  4. NEXIUM [Suspect]
     Indication: BARRETT'S OESOPHAGUS
     Route: 048
  5. IBUPROFEN [Concomitant]

REACTIONS (2)
  - DRUG PRESCRIBING ERROR [None]
  - DYSPEPSIA [None]
